FAERS Safety Report 7337166-X (Version None)
Quarter: 2011Q1

REPORT INFORMATION
  Report Type: 
  Country: None (occurrence: None)
  Receive Date: 20110308
  Receipt Date: 20110228
  Transmission Date: 20110831
  Serious: Yes (Other)
  Sender: FDA-Public Use
  Company Number: US-PFIZER INC-2010146046

PATIENT
  Age: 21 Year
  Sex: Female
  Weight: 48 kg

DRUGS (4)
  1. ZOLOFT [Suspect]
     Indication: DEPRESSION
     Dosage: 125 MG DAILY
     Route: 048
     Dates: start: 20100701
  2. VYVANSE [Concomitant]
     Dosage: 70 MG, UNK
  3. ZOLOFT [Suspect]
     Indication: ANXIETY
  4. NYQUIL COLD AND FLU [Suspect]
     Dosage: UNK

REACTIONS (2)
  - SEROTONIN SYNDROME [None]
  - INTENTIONAL OVERDOSE [None]
